FAERS Safety Report 9436117 (Version 1)
Quarter: 2013Q3

REPORT INFORMATION
  Report Type: Spontaneous
  Country: FR (occurrence: FR)
  Receive Date: 20130801
  Receipt Date: 20130801
  Transmission Date: 20140515
  Serious: Yes (Other)
  Sender: FDA-Public Use
  Company Number: FR-PFIZER INC-2013217824

PATIENT
  Age: 48 Year
  Sex: Male
  Weight: 97 kg

DRUGS (3)
  1. TAHOR [Suspect]
     Dosage: 40 MG, 1X/DAY
     Route: 048
     Dates: start: 20130628, end: 20130704
  2. VISIPAQUE [Suspect]
     Indication: ARTERIOGRAM CORONARY
     Dosage: 110 ML, SINGLE
     Route: 042
     Dates: start: 20130628, end: 20130628
  3. TEMERIT [Suspect]
     Dosage: 2.5 MG, 1X/DAY
     Route: 048
     Dates: start: 20130628, end: 20130704

REACTIONS (4)
  - Erythema [Recovering/Resolving]
  - Pruritus [Recovering/Resolving]
  - Gamma-glutamyltransferase increased [Unknown]
  - Pyrexia [Unknown]
